FAERS Safety Report 4877349-1 (Version None)
Quarter: 2006Q1

REPORT INFORMATION
  Report Type: 
  Country: None (occurrence: None)
  Receive Date: 20060106
  Receipt Date: 20060104
  Transmission Date: 20060701
  Serious: Yes (Disabling)
  Sender: FDA-Public Use
  Company Number: S05-PRT-03940-01

PATIENT
  Age: 49 Year
  Sex: Male

DRUGS (11)
  1. CIPRALEX (ESCITALOPRAM) [Suspect]
     Indication: DEPRESSION
     Dosage: 5 MG QD PO
     Route: 048
     Dates: start: 20051005, end: 20051006
  2. CIPRALEX (ESCITALOPRAM) [Suspect]
     Indication: DEPRESSION
     Dosage: 10 MG QD PO
     Route: 048
     Dates: start: 20051007, end: 20051010
  3. SELEGILINE HCL [Concomitant]
  4. PIRIDEXIL [Concomitant]
  5. SINEMET [Concomitant]
  6. TICLOPIDINE HCL [Concomitant]
  7. RISIDON (METFORMIN HYDROCHLORIDE) [Concomitant]
  8. INSULINE (INSULIN) [Concomitant]
  9. INSULE RAPID (INSULIN) [Concomitant]
  10. PERGOLIDE [Concomitant]
  11. MIXTARD HUMAN 70/30 [Concomitant]

REACTIONS (12)
  - ALANINE AMINOTRANSFERASE INCREASED [None]
  - ASPARTATE AMINOTRANSFERASE INCREASED [None]
  - BLOOD CHLORIDE DECREASED [None]
  - BLOOD GLUCOSE INCREASED [None]
  - DRUG WITHDRAWAL SYNDROME [None]
  - ELECTROCARDIOGRAM QRS COMPLEX PROLONGED [None]
  - ELECTROCARDIOGRAM QT PROLONGED [None]
  - HEADACHE [None]
  - HYPERAEMIA [None]
  - HYPERHIDROSIS [None]
  - HYPERTENSION [None]
  - SOMNOLENCE [None]
